FAERS Safety Report 8428729-9 (Version None)
Quarter: 2012Q2

REPORT INFORMATION
  Report Type: 
  Country: None (occurrence: None)
  Receive Date: 20120612
  Receipt Date: 20120604
  Transmission Date: 20120825
  Serious: Yes (Hospitalization)
  Sender: FDA-Public Use
  Company Number: US-BAYER-2012-009981

PATIENT
  Age: 45 Year
  Sex: Female
  Weight: 74.83 kg

DRUGS (5)
  1. YAZ [Suspect]
     Dosage: UNK
     Dates: start: 20030901, end: 20090101
  2. ANTIBIOTICS [Concomitant]
  3. YASMIN [Suspect]
     Dosage: UNK
     Dates: start: 20060101, end: 20091001
  4. YAZ [Suspect]
     Indication: ACNE
     Dosage: UNK
  5. YASMIN [Suspect]
     Indication: ACNE
     Dosage: UNK
     Dates: start: 20060101, end: 20091001

REACTIONS (7)
  - INJURY [None]
  - MYOCARDIAL INFARCTION [None]
  - EMOTIONAL DISTRESS [None]
  - PHYSICAL DISABILITY [None]
  - GENERAL PHYSICAL HEALTH DETERIORATION [None]
  - ANXIETY [None]
  - PAIN [None]
